FAERS Safety Report 15488361 (Version 3)
Quarter: 2019Q1

REPORT INFORMATION
  Report Type: Spontaneous
  Country: JP (occurrence: JP)
  Receive Date: 20181011
  Receipt Date: 20190220
  Transmission Date: 20190417
  Serious: Yes (Life-Threatening, Other)
  Sender: FDA-Public Use
  Company Number: JP-GILEAD-2018-0365200

PATIENT
  Age: 57 Year
  Sex: Female
  Weight: 67.5 kg

DRUGS (11)
  1. DEBERZA [Concomitant]
     Active Substance: TOFOGLIFLOZIN
     Indication: TYPE 2 DIABETES MELLITUS
     Dosage: 20 MG, QD (MORNING)
  2. ROHYPNOL [Concomitant]
     Active Substance: FLUNITRAZEPAM
     Indication: DEPRESSION
     Dosage: 2 MG, 1 TABLET QD (BEFORE SLEEP)
     Route: 048
     Dates: start: 2000
  3. RIVOTRIL [Concomitant]
     Active Substance: CLONAZEPAM
     Indication: DEPRESSION
     Dosage: 5 MG, 1 TABLET QD (EVENING)
     Route: 048
  4. LOSIZOPILON [Concomitant]
     Active Substance: ZOTEPINE
     Indication: DEPRESSION
     Dosage: 7 DF (25 MG/TABLET) QD
     Route: 048
     Dates: start: 2000
  5. SENNOSIDE A+B [Concomitant]
     Active Substance: SENNOSIDES A AND B
     Indication: CONSTIPATION
     Dosage: 12 MG, AS NEEDED
  6. HARVONI [Suspect]
     Active Substance: LEDIPASVIR\SOFOSBUVIR
     Indication: HEPATIC CIRRHOSIS
     Dosage: 1 DF/DAY
     Route: 048
     Dates: start: 20180317, end: 20180501
  7. PYRETHIA [PROMETHAZINE HYDROCHLORIDE] [Concomitant]
     Indication: DEPRESSION
     Dosage: 2 DF (25 MG/TABLET), QD (BEFORE SLEEP)
     Dates: start: 2000
  8. TAKECAB [Concomitant]
     Active Substance: VONOPRAZAN FUMURATE
     Indication: GASTRIC ULCER
     Dosage: 10 MG, QD (EVENING)
  9. JUVELA N [Concomitant]
     Active Substance: TOCOPHERYL NICOTINATE, D-.ALPHA.
     Indication: DYSLIPIDAEMIA
     Dosage: 1 DF, TID
  10. HARVONI [Suspect]
     Active Substance: LEDIPASVIR\SOFOSBUVIR
     Dosage: 1 DF/DAY
     Route: 048
     Dates: end: 20180522
  11. URSO DS [Concomitant]
     Indication: HEPATIC CIRRHOSIS
     Dosage: 2 DF, TID

REACTIONS (1)
  - Oesophageal varices haemorrhage [Recovered/Resolved]

NARRATIVE: CASE EVENT DATE: 20180428
